FAERS Safety Report 23570015 (Version 1)
Quarter: 2024Q1

REPORT INFORMATION
  Report Type: Report from Study
  Country: US (occurrence: US)
  Receive Date: 20240227
  Receipt Date: 20240227
  Transmission Date: 20240409
  Serious: Yes (Hospitalization)
  Sender: FDA-Public Use
  Company Number: US-ALNYLAM PHARMACEUTICALS, INC.-ALN-2024-001029

PATIENT

DRUGS (2)
  1. GIVLAARI [Suspect]
     Active Substance: GIVOSIRAN SODIUM
     Indication: Product used for unknown indication
     Dosage: 300 MILLIGRAM, EVERY 28 DAYS
     Route: 058
  2. GIVLAARI [Suspect]
     Active Substance: GIVOSIRAN SODIUM
     Dosage: 300 MILLIGRAM, EVERY 28 DAYS
     Route: 058
     Dates: start: 20240220, end: 20240220

REACTIONS (4)
  - Condition aggravated [Unknown]
  - Dizziness [Unknown]
  - Toothache [Unknown]
  - Weight increased [Unknown]
